FAERS Safety Report 7722040-7 (Version None)
Quarter: 2011Q3

REPORT INFORMATION
  Report Type: 
  Country: None (occurrence: None)
  Receive Date: 20110825
  Receipt Date: 20110814
  Transmission Date: 20111222
  Serious: Yes (Hospitalization)
  Sender: FDA-Public Use
  Company Number: 15929649

PATIENT
  Age: 78 Year
  Sex: Female

DRUGS (4)
  1. PLACEBO [Suspect]
     Indication: EMBOLISM
     Dosage: SC
     Route: 058
     Dates: start: 20110207
  2. WARFARIN SODIUM [Suspect]
     Indication: EMBOLISM
     Dosage: 6 MILLIGRAM, 1 DAY, ORAL
     Route: 048
     Dates: start: 20110207
  3. APIXABAN [Suspect]
     Indication: EMBOLISM
     Dosage: 5 MILLIGRAM, 1 DAY, ORAL
     Route: 048
     Dates: start: 20110207
  4. ENOXAPARIN SODIUM [Suspect]
     Indication: EMBOLISM
     Dosage: 100 MILLILITER 1 DAY, SC
     Route: 058
     Dates: start: 20110207, end: 20110211

REACTIONS (1)
  - URINARY TRACT INFECTION [None]
